FAERS Safety Report 4871550-9 (Version None)
Quarter: 2005Q4

REPORT INFORMATION
  Report Type: 
  Country: None (occurrence: None)
  Receive Date: 20051230
  Receipt Date: 20051227
  Transmission Date: 20060501
  Serious: Yes (Death, Hospitalization)
  Sender: FDA-Public Use
  Company Number: 2005-12-0431

PATIENT
  Age: 65 Year
  Sex: Male
  Weight: 79 kg

DRUGS (7)
  1. PEG-INTRON [Suspect]
     Indication: HEPATITIS C
     Dosage: SEE IMAGE
     Route: 058
     Dates: start: 20050804, end: 20051020
  2. PEG-INTRON [Suspect]
     Indication: HEPATITIS C
     Dosage: SEE IMAGE
     Route: 058
     Dates: start: 20051031, end: 20051205
  3. REBETOL [Suspect]
     Indication: HEPATITIS C
     Dosage: 800 MG ORAL
     Route: 048
     Dates: start: 20050804, end: 20051208
  4. AROTINOLOL HYDROCHLORIDE [Concomitant]
  5. CONIEL (BENIDIPINE HCL) [Concomitant]
  6. DOXAZOSIN MESYLATE [Concomitant]
  7. DIOVAN [Concomitant]

REACTIONS (4)
  - CARDIAC TAMPONADE [None]
  - CARDIO-RESPIRATORY ARREST [None]
  - SUDDEN DEATH [None]
  - TOXIC SKIN ERUPTION [None]
